FAERS Safety Report 12983601 (Version 2)
Quarter: 2017Q1

REPORT INFORMATION
  Report Type: Spontaneous
  Country: DE (occurrence: DE)
  Receive Date: 20161129
  Receipt Date: 20170105
  Transmission Date: 20170428
  Serious: Yes (Hospitalization)
  Sender: FDA-Public Use
  Company Number: DE-ROCHE-1856322

PATIENT
  Age: 51 Year
  Sex: Female

DRUGS (6)
  1. PARACETAMOL [Concomitant]
     Active Substance: ACETAMINOPHEN
     Indication: PYREXIA
     Route: 048
     Dates: start: 2016
  2. VOMEX (UNK INGREDIENTS) [Concomitant]
     Indication: VOMITING
     Route: 048
     Dates: start: 201610
  3. COTELLIC [Suspect]
     Active Substance: COBIMETINIB
     Indication: METASTATIC MALIGNANT MELANOMA
     Route: 048
     Dates: start: 20161104, end: 20161108
  4. ZELBORAF [Suspect]
     Active Substance: VEMURAFENIB
     Indication: METASTATIC MALIGNANT MELANOMA
     Route: 048
     Dates: start: 20161104, end: 20161112
  5. PARACETAMOL [Concomitant]
     Active Substance: ACETAMINOPHEN
     Indication: PAIN
  6. GRANISETRON [Concomitant]
     Active Substance: GRANISETRON
     Indication: VOMITING
     Route: 048
     Dates: start: 201610

REACTIONS (13)
  - C-reactive protein increased [Unknown]
  - Procalcitonin increased [Unknown]
  - Anuria [Recovering/Resolving]
  - Drug eruption [Recovered/Resolved]
  - Renal function test abnormal [Unknown]
  - Toxic epidermal necrolysis [Recovered/Resolved with Sequelae]
  - Vomiting [Recovered/Resolved]
  - Platelet count decreased [Unknown]
  - General physical health deterioration [Recovering/Resolving]
  - Hypotension [Recovering/Resolving]
  - Sepsis [Recovered/Resolved]
  - Disturbance in attention [Unknown]
  - Nausea [Recovered/Resolved]

NARRATIVE: CASE EVENT DATE: 20161116
